FAERS Safety Report 8354006-0 (Version None)
Quarter: 2012Q2

REPORT INFORMATION
  Report Type: 
  Country: None (occurrence: None)
  Receive Date: 20120511
  Receipt Date: 20120507
  Transmission Date: 20120825
  Serious: Yes (Life-Threatening, Hospitalization, Other)
  Sender: FDA-Public Use
  Company Number: US-ASTRAZENECA-2012SE29306

PATIENT
  Age: 41 Year
  Sex: Female

DRUGS (13)
  1. LATUDA [Concomitant]
  2. MIRTAZAPINE [Concomitant]
  3. TRAZODONE HCL [Concomitant]
  4. SEROQUEL [Suspect]
     Route: 048
  5. DESOGEN [Concomitant]
  6. LYRICA [Concomitant]
  7. CLONAZEPAM [Concomitant]
  8. TIZANIDINE [Concomitant]
  9. SEROQUEL [Suspect]
     Route: 048
  10. CYMBALTA [Concomitant]
  11. KAPVOY [Concomitant]
  12. SYNTHROID [Concomitant]
  13. ZIAC [Concomitant]

REACTIONS (5)
  - SUICIDE ATTEMPT [None]
  - POST-TRAUMATIC STRESS DISORDER [None]
  - H1N1 INFLUENZA [None]
  - SYSTEMIC LUPUS ERYTHEMATOSUS [None]
  - FIBROMYALGIA [None]
